FAERS Safety Report 9476093 (Version 1)
Quarter: 2013Q3

REPORT INFORMATION
  Report Type: Spontaneous
  Country: CA (occurrence: None)
  Receive Date: 20130821
  Receipt Date: 20130821
  Transmission Date: 20140515
  Serious: Yes (Hospitalization)
  Sender: FDA-Public Use
  Company Number: 1846505

PATIENT
  Age: 55 Year
  Sex: Female

DRUGS (6)
  1. VANCOMYCIN HYDROCHLORIDE [Suspect]
     Indication: MENINGITIS BACTERIAL
  2. VANCOMYCIN HYDROCHLORIDE [Suspect]
  3. CEFTRIAXONE SODIUM [Suspect]
  4. CEFTAZIDIME [Suspect]
     Indication: MENINGITIS BACTERIAL
  5. MEROPENEM [Suspect]
     Indication: MENINGITIS BACTERIAL
  6. CIPROFLOXACIN [Concomitant]

REACTIONS (2)
  - Drug reaction with eosinophilia and systemic symptoms [None]
  - Drug hypersensitivity [None]
